FAERS Safety Report 6738974-6 (Version None)
Quarter: 2010Q2

REPORT INFORMATION
  Report Type: 
  Country: None (occurrence: None)
  Receive Date: 20100521
  Receipt Date: 20100507
  Transmission Date: 20101027
  Serious: Yes (Hospitalization, Other)
  Sender: FDA-Public Use
  Company Number: A-US2010-36443

PATIENT
  Age: 63 Year
  Sex: Male

DRUGS (16)
  1. TRACLEER [Suspect]
     Indication: PULMONARY HYPERTENSION
     Dosage: 125 MG, BID, ORAL, 62.5 MG, BID, 62.5 MG BID
     Route: 048
     Dates: start: 20090529, end: 20090630
  2. TRACLEER [Suspect]
     Indication: PULMONARY HYPERTENSION
     Dosage: 125 MG, BID, ORAL, 62.5 MG, BID, 62.5 MG BID
     Route: 048
     Dates: start: 20090701, end: 20100403
  3. TRACLEER [Suspect]
     Indication: PULMONARY HYPERTENSION
     Dosage: 125 MG, BID, ORAL, 62.5 MG, BID, 62.5 MG BID
     Route: 048
     Dates: start: 20100409, end: 20100412
  4. TRACLEER [Suspect]
     Indication: PULMONARY HYPERTENSION
     Dosage: 125 MG, BID, ORAL, 62.5 MG, BID, 62.5 MG BID
     Route: 048
     Dates: start: 20100420
  5. TADALAFIL [Concomitant]
  6. NASONEX [Concomitant]
  7. LASIX [Concomitant]
  8. POTASSIUM (POTASSIUM GLUCONATE) [Concomitant]
  9. SYNTHROID [Concomitant]
  10. FOSAMAX [Concomitant]
  11. CALCIUM (RIBOFLAVIN SODIUM PHOSPHATE) [Concomitant]
  12. LOVENOX [Concomitant]
  13. CLARITIN [Concomitant]
  14. VITAMIN C (ASORBIC ACID) [Concomitant]
  15. VITAMIN E (TOCOPHERYL ACETATE) [Concomitant]
  16. MULTIVITAMIN [Concomitant]

REACTIONS (6)
  - ISCHAEMIC HEPATITIS [None]
  - OFF LABEL USE [None]
  - PNEUMONIA [None]
  - RENAL FAILURE ACUTE [None]
  - SEPSIS [None]
  - SINUSITIS [None]
